FAERS Safety Report 12846621 (Version 1)
Quarter: 2016Q4

REPORT INFORMATION
  Report Type: Spontaneous
  Country: CA (occurrence: CA)
  Receive Date: 20161014
  Receipt Date: 20161014
  Transmission Date: 20170207
  Serious: Yes (Other)
  Sender: FDA-Public Use
  Company Number: CA-AMGEN-CANSP2016140913

PATIENT
  Age: 68 Year
  Sex: Female

DRUGS (5)
  1. ORENCIA [Concomitant]
     Active Substance: ABATACEPT
     Dosage: UNK
  2. PLAQUENIL [Concomitant]
     Active Substance: HYDROXYCHLOROQUINE SULFATE
     Dosage: UNK
  3. METHOTREXATE. [Concomitant]
     Active Substance: METHOTREXATE
     Indication: RHEUMATOID ARTHRITIS
     Dosage: 15 MG, QWK
     Route: 048
  4. NAPROSYN [Concomitant]
     Active Substance: NAPROXEN
     Dosage: 375 MG, BID
  5. ENBREL [Suspect]
     Active Substance: ETANERCEPT
     Indication: RHEUMATOID ARTHRITIS
     Dosage: UNK
     Route: 065
     Dates: end: 20160926

REACTIONS (6)
  - Pain in extremity [Unknown]
  - Pericarditis [Unknown]
  - Adverse reaction [Unknown]
  - Peripheral swelling [Unknown]
  - Decreased activity [Unknown]
  - Arthropathy [Unknown]

NARRATIVE: CASE EVENT DATE: 2013
